FAERS Safety Report 4763155-5 (Version None)
Quarter: 2005Q3

REPORT INFORMATION
  Report Type: 
  Country: None (occurrence: None)
  Receive Date: 20050901
  Receipt Date: 20050812
  Transmission Date: 20060218
  Serious: Yes (Death)
  Sender: FDA-Public Use
  Company Number: ALB/05/04/USA

PATIENT
  Age: 49 Year
  Sex: Female
  Weight: 156.0374 kg

DRUGS (9)
  1. ALBURX [Suspect]
     Indication: MYASTHENIA GRAVIS
     Dosage: 4000 ML, EVERY OTHER DAY, I.V.
     Route: 042
     Dates: start: 20050804, end: 20050808
  2. MESTINON [Concomitant]
  3. ALLOPURINOL [Concomitant]
  4. NPH INSULIN [Concomitant]
  5. LASIX [Concomitant]
  6. FERROUS SULFATE TAB [Concomitant]
  7. VERAPAMIL [Concomitant]
  8. LISINOPRIL [Concomitant]
  9. CELLCEPT [Concomitant]

REACTIONS (17)
  - ASTHENIA [None]
  - BLOOD PRESSURE DIASTOLIC DECREASED [None]
  - CARDIAC FAILURE CONGESTIVE [None]
  - CARDIOMEGALY [None]
  - DIALYSIS [None]
  - DYSPHAGIA [None]
  - DYSPNOEA [None]
  - EYELID PTOSIS [None]
  - FAECAL INCONTINENCE [None]
  - FATIGUE [None]
  - FEELING HOT [None]
  - FOAMING AT MOUTH [None]
  - MYASTHENIA GRAVIS [None]
  - PLEURAL EFFUSION [None]
  - RESPIRATORY RATE INCREASED [None]
  - URINARY INCONTINENCE [None]
  - VISION BLURRED [None]
